FAERS Safety Report 4540894-2 (Version None)
Quarter: 2004Q4

REPORT INFORMATION
  Report Type: 
  Country: None (occurrence: None)
  Receive Date: 20041228
  Receipt Date: 20041220
  Transmission Date: 20050328
  Serious: No
  Sender: FDA-Public Use
  Company Number: 04H-008-0284345-00

PATIENT
  Sex: 0

DRUGS (3)
  1. LEUCOVORIN CALCIUM [Suspect]
     Indication: CHEMOTHERAPY
     Dosage: 20 MG/M2/DAY, 5 DAYS, INTRAVENOUS
     Route: 042
  2. FLUOROURACIL [Suspect]
     Indication: CHEMOTHERAPY
     Dosage: 425 MG/M2/DAY, INTRAVENOUS
     Route: 042
  3. SIRT [Suspect]
     Indication: CHEMOTHERAPY
     Dosage: 1.5-2.5 GBQ

REACTIONS (1)
  - LIVER ABSCESS [None]
